FAERS Safety Report 10040809 (Version 1)
Quarter: 2014Q1

REPORT INFORMATION
  Report Type: Spontaneous
  Country: US (occurrence: US)
  Receive Date: 20140327
  Receipt Date: 20140327
  Transmission Date: 20141002
  Serious: Yes (Hospitalization)
  Sender: FDA-Public Use
  Company Number: US-JNJFOC-20140311857

PATIENT
  Sex: 0

DRUGS (1)
  1. PANCREAZE [Suspect]
     Indication: PRODUCT USED FOR UNKNOWN INDICATION
     Dosage: 10500 UNITS
     Route: 048

REACTIONS (2)
  - Gastrostomy [Unknown]
  - Living in residential institution [Unknown]
